FAERS Safety Report 4937303-8 (Version None)
Quarter: 2006Q1

REPORT INFORMATION
  Report Type: 
  Country: None (occurrence: None)
  Receive Date: 20060306
  Receipt Date: 20060223
  Transmission Date: 20060701
  Serious: Yes (Other)
  Sender: FDA-Public Use
  Company Number: 13572

PATIENT
  Age: 81 Year
  Sex: Male

DRUGS (1)
  1. AMIODARONE HCL [Suspect]

REACTIONS (5)
  - BONE MARROW DISORDER [None]
  - GRANULOMA [None]
  - HEPATOSPLENOMEGALY [None]
  - LEUKOPENIA [None]
  - THROMBOCYTOPENIA [None]
